FAERS Safety Report 17961785 (Version 1)
Quarter: 2020Q2

REPORT INFORMATION
  Report Type: Spontaneous
  Country: US (occurrence: US)
  Receive Date: 20200629
  Receipt Date: 20200629
  Transmission Date: 20200714
  Serious: No
  Sender: FDA-Public Use
  Company Number: None

PATIENT
  Age: 35 Year
  Sex: Female
  Weight: 76.5 kg

DRUGS (1)
  1. ETONOGESTREL/ETHINYL ESTRADIOL [Suspect]
     Active Substance: ETHINYL ESTRADIOL\ETONOGESTREL
     Indication: CONTRACEPTION
     Dosage: ?          QUANTITY:1 RING;OTHER FREQUENCY:MONTHLY;?
     Route: 067
     Dates: start: 20200607, end: 20200628

REACTIONS (7)
  - Mood swings [None]
  - Vaginal haemorrhage [None]
  - Acne cystic [None]
  - Weight increased [None]
  - Haemorrhage [None]
  - Crying [None]
  - Irritability [None]

NARRATIVE: CASE EVENT DATE: 20200626
